FAERS Safety Report 24406156 (Version 1)
Quarter: 2024Q4

REPORT INFORMATION
  Report Type: Spontaneous
  Country: CA (occurrence: CA)
  Receive Date: 20241007
  Receipt Date: 20241007
  Transmission Date: 20250115
  Serious: Yes (Other)
  Sender: PFIZER
  Company Number: CA-PFIZER INC-202400270127

PATIENT
  Age: 28 Year
  Sex: Female

DRUGS (11)
  1. XELJANZ XR [Suspect]
     Active Substance: TOFACITINIB CITRATE
     Indication: Rheumatoid arthritis
     Dosage: 11 MG, 1X/DAY
     Route: 048
  2. ADVIL [Concomitant]
     Active Substance: IBUPROFEN
     Dosage: 1 DF, AS NEEDED
     Route: 065
  3. COSENTYX [Concomitant]
     Active Substance: SECUKINUMAB
     Dosage: 300 MG
     Route: 058
     Dates: start: 2019
  4. CYCLOBENZAPRINE [Concomitant]
     Active Substance: CYCLOBENZAPRINE
     Dosage: 1 DF
     Route: 065
  5. NAPROXEN [Concomitant]
     Active Substance: NAPROXEN
     Dosage: 500 MG, 2X/DAY, AS NEEDED
     Route: 048
  6. DULOXETINE [Concomitant]
     Active Substance: DULOXETINE
     Dosage: 30 MG, 1X/DAY
     Route: 048
  7. AXERT [Concomitant]
     Active Substance: ALMOTRIPTAN MALATE
     Indication: Migraine
     Dosage: 1 DF 12.5MG, AS NEEDED
     Route: 048
  8. VITAMIN D3 [Concomitant]
     Active Substance: CHOLECALCIFEROL
     Dosage: 2000 IU, 1X/DAY
     Route: 048
  9. IRON [Concomitant]
     Active Substance: IRON
     Dosage: 1 DF
     Route: 048
  10. MIRENA [Concomitant]
     Active Substance: LEVONORGESTREL
     Dosage: 1 DF, INTRAUTERINE
     Route: 065
  11. BOTOX [Concomitant]
     Active Substance: ONABOTULINUMTOXINA
     Indication: Muscle disorder
     Dosage: 1 DF, EVERY 3 MONTHS
     Route: 065

REACTIONS (2)
  - Migraine [Unknown]
  - COVID-19 [Unknown]

NARRATIVE: CASE EVENT DATE: 20240901
